FAERS Safety Report 9675870 (Version 1)
Quarter: 2013Q4

REPORT INFORMATION
  Report Type: Spontaneous
  Country: FR (occurrence: FR)
  Receive Date: 20131107
  Receipt Date: 20131107
  Transmission Date: 20140711
  Serious: Yes (Hospitalization)
  Sender: FDA-Public Use
  Company Number: FR-GLAXOSMITHKLINE-B0938053A

PATIENT
  Age: 56 Year
  Sex: Male

DRUGS (12)
  1. WELLVONE [Suspect]
     Indication: PNEUMOCYSTIS JIROVECII PNEUMONIA
     Dosage: 3000MG PER DAY
     Route: 048
     Dates: start: 20130729, end: 20130807
  2. BACTRIM [Concomitant]
     Indication: PNEUMOCYSTIS JIROVECII PNEUMONIA
     Dosage: 1200MG PER DAY
     Route: 042
     Dates: start: 20130715, end: 20130728
  3. METHYLPREDNISOLONE [Concomitant]
     Indication: PRODUCT USED FOR UNKNOWN INDICATION
     Dosage: 120MG PER DAY
     Route: 042
  4. LOVENOX [Concomitant]
     Indication: PRODUCT USED FOR UNKNOWN INDICATION
     Dosage: 4000IU PER DAY
     Route: 058
     Dates: start: 201305
  5. DIFFU K [Concomitant]
     Indication: PRODUCT USED FOR UNKNOWN INDICATION
     Dosage: 600MG TWICE PER DAY
     Route: 048
  6. EUPANTOL [Concomitant]
     Indication: PRODUCT USED FOR UNKNOWN INDICATION
     Dosage: 20MG PER DAY
     Route: 048
  7. LEVETIRACETAM [Concomitant]
     Indication: PRODUCT USED FOR UNKNOWN INDICATION
     Dosage: 500MG TWICE PER DAY
     Route: 048
  8. PENTACARINAT [Concomitant]
     Dates: start: 20130808
  9. VINCRISTINE [Concomitant]
     Indication: OLIGODENDROGLIOMA
     Dates: start: 201306
  10. PROCARBAZINE [Concomitant]
     Indication: OLIGODENDROGLIOMA
     Dates: start: 201306
  11. LOMUSTINE [Concomitant]
     Indication: OLIGODENDROGLIOMA
     Dates: start: 201306
  12. KEPPRA [Concomitant]
     Indication: PRODUCT USED FOR UNKNOWN INDICATION
     Dates: start: 201305

REACTIONS (1)
  - Anaemia [Recovered/Resolved]
